FAERS Safety Report 8275863-2 (Version None)
Quarter: 2012Q2

REPORT INFORMATION
  Report Type: 
  Country: None (occurrence: None)
  Receive Date: 20120410
  Receipt Date: 20120410
  Transmission Date: 20120825
  Serious: No
  Sender: FDA-Public Use
  Company Number: None

PATIENT
  Sex: Male

DRUGS (9)
  1. REVLIMID [Suspect]
     Indication: MULTIPLE MYELOMA
     Dosage: REVLIMID 25 MG DAILY X21D/28D ORALLY
     Route: 048
     Dates: start: 20120305, end: 20120315
  2. OXYCODONE HCL [Concomitant]
  3. CYCLOBENZAPRIN [Concomitant]
  4. ACYCLOVIR [Concomitant]
  5. METFORMIN HCL [Concomitant]
  6. NPH INSULIN [Concomitant]
  7. SIMVASTATIN [Concomitant]
  8. WARFARIN SODIUM [Concomitant]
  9. GLIPIZIDE [Concomitant]

REACTIONS (6)
  - RASH [None]
  - NAUSEA [None]
  - DECREASED APPETITE [None]
  - ASTHENIA [None]
  - MALAISE [None]
  - VOMITING [None]
